FAERS Safety Report 12470643 (Version 2)
Quarter: 2016Q3

REPORT INFORMATION
  Report Type: Report from Study
  Country: US (occurrence: US)
  Receive Date: 20160616
  Receipt Date: 20160823
  Transmission Date: 20161109
  Serious: Yes (Hospitalization)
  Sender: FDA-Public Use
  Company Number: PHHO2016US008298

PATIENT
  Age: 49 Year
  Sex: Female
  Weight: 68.7 kg

DRUGS (13)
  1. BLINDED PLACEBO [Suspect]
     Active Substance: INVESTIGATIONAL PRODUCT
     Indication: POLYCYSTIC LIVER DISEASE
     Dosage: CODE NOT BROKEN
     Route: 030
     Dates: start: 20141020
  2. SOM230 [Suspect]
     Active Substance: PASIREOTIDE
     Indication: POLYCYSTIC LIVER DISEASE
     Dosage: UNK
     Route: 065
     Dates: end: 20160502
  3. FERROUS SULFATE. [Concomitant]
     Active Substance: FERROUS SULFATE
     Indication: PRODUCT USED FOR UNKNOWN INDICATION
     Dosage: 325 MG, QD
     Route: 048
  4. TUMS [Concomitant]
     Active Substance: CALCIUM CARBONATE
     Indication: PRODUCT USED FOR UNKNOWN INDICATION
     Dosage: 500 MG, PRN (TABLET)
     Route: 048
  5. ALLEGRA [Concomitant]
     Active Substance: FEXOFENADINE HYDROCHLORIDE
     Indication: PRODUCT USED FOR UNKNOWN INDICATION
     Dosage: 180 MG, QD (1 TABLET BY MOUTH ONE TIME)
     Route: 048
  6. PROAIR HFA [Concomitant]
     Active Substance: ALBUTEROL SULFATE
     Indication: PRODUCT USED FOR UNKNOWN INDICATION
     Dosage: 90 UG, (1-2 PUFFS, EVERY 4 HOURS AS NEEDED)
     Route: 055
  7. LEVOTHYROXINE. [Concomitant]
     Active Substance: LEVOTHYROXINE
     Indication: PRODUCT USED FOR UNKNOWN INDICATION
     Dosage: 50 UG, QD (1 TABLET BY MOUTH ONE TIME)
     Route: 048
  8. NEXIUM 1-2-3 [Concomitant]
     Active Substance: AMOXICILLIN\CLARITHROMYCIN\ESOMEPRAZOLE
     Indication: PRODUCT USED FOR UNKNOWN INDICATION
     Dosage: 1 DF (CAPSULE), QD
     Route: 048
  9. SYMBICORT [Concomitant]
     Active Substance: BUDESONIDE\FORMOTEROL FUMARATE DIHYDRATE
     Indication: PRODUCT USED FOR UNKNOWN INDICATION
     Dosage: BID
     Route: 055
  10. MULTI VITAMIN [Concomitant]
     Active Substance: VITAMINS
     Indication: PRODUCT USED FOR UNKNOWN INDICATION
     Dosage: (WOMEN^S ONE A DAY 1 TIME DAILY)
     Route: 065
  11. BLINDED NO TREATMENT RECEIVED [Suspect]
     Active Substance: INVESTIGATIONAL PRODUCT
     Indication: POLYCYSTIC LIVER DISEASE
     Dosage: CODE NOT BROKEN
     Route: 030
     Dates: start: 20141020
  12. BLINDED SOM230 [Suspect]
     Active Substance: PASIREOTIDE
     Indication: POLYCYSTIC LIVER DISEASE
     Dosage: CODE NOT BROKEN
     Route: 030
     Dates: start: 20141020
  13. BEANO [Concomitant]
     Active Substance: ASPERGILLUS NIGER .ALPHA.-GALACTOSIDASE
     Indication: PRODUCT USED FOR UNKNOWN INDICATION
     Dosage: 1 DF (TABLET), PRN
     Route: 048

REACTIONS (3)
  - Abdominal pain [Unknown]
  - Hepatic cyst infection [Unknown]
  - Klebsiella infection [Unknown]

NARRATIVE: CASE EVENT DATE: 20160526
